FAERS Safety Report 16397226 (Version 2)
Quarter: 2021Q1

REPORT INFORMATION
  Report Type: Report from Study
  Country: JP (occurrence: JP)
  Receive Date: 20190606
  Receipt Date: 20210308
  Transmission Date: 20210419
  Serious: Yes (Hospitalization)
  Sender: FDA-Public Use
  Company Number: JP-ROCHE-2332919

PATIENT
  Age: 18 Year
  Sex: Female

DRUGS (6)
  1. RITUXIMAB. [Suspect]
     Active Substance: RITUXIMAB
     Indication: NEPHROTIC SYNDROME
     Dosage: UNCERTAINTY AND FOUR TIMES OF DOSE INTERVAL
     Route: 041
     Dates: start: 20180323, end: 20180323
  2. TAMIFLU [Suspect]
     Active Substance: OSELTAMIVIR PHOSPHATE
     Indication: INFLUENZA
     Route: 048
     Dates: start: 20190511
  3. RITUXIMAB. [Suspect]
     Active Substance: RITUXIMAB
     Dosage: UNCERTAINTY AND FOUR TIMES OF DOSE INTERVAL
     Route: 041
     Dates: start: 20180330, end: 20180330
  4. RITUXIMAB. [Suspect]
     Active Substance: RITUXIMAB
     Dosage: UNCERTAINTY AND FOUR TIMES OF DOSE INTERVAL
     Route: 041
     Dates: start: 20180405, end: 20180405
  5. RITUXIMAB. [Suspect]
     Active Substance: RITUXIMAB
     Dosage: UNCERTAINTY AND FOUR TIMES OF DOSE INTERVAL
     Route: 041
     Dates: start: 20180413, end: 20180413
  6. PLACEBO [Suspect]
     Active Substance: UNSPECIFIED INGREDIENT
     Indication: NEPHROTIC SYNDROME
     Route: 048
     Dates: start: 20180414

REACTIONS (2)
  - Acute kidney injury [Recovered/Resolved]
  - Influenza [Recovered/Resolved]

NARRATIVE: CASE EVENT DATE: 20190511
